FAERS Safety Report 8879130 (Version 4)
Quarter: 2013Q1

REPORT INFORMATION
  Report Type: Spontaneous
  Country: None (occurrence: None)
  Receive Date: 20121025
  Receipt Date: 20130109
  Transmission Date: 20140127
  Serious: Yes (Death, Hospitalization)
  Sender: FDA-Public Use
  Company Number: 2012S1001293

PATIENT
  Age: 87 Year
  Sex: Male

DRUGS (6)
  1. LIVALO [Suspect]
     Indication: HYPERLIPIDAEMIA
     Route: 048
     Dates: start: 20120912, end: 20121005
  2. CONCOR [Suspect]
     Indication: HYPERTENSION
     Route: 048
     Dates: start: 20120912, end: 20121022
  3. DILTIAZEM [Suspect]
     Indication: HYPERTENSION
     Route: 048
     Dates: end: 20121022
  4. HARNALIDGE (TAMSULOSIN HYDROCHLORIDE) [Suspect]
     Route: 048
     Dates: start: 20120912, end: 20121022
  5. HUMALIN (INSULIN) [Suspect]
     Route: 058
     Dates: end: 20121022
  6. ORFARIN (WARFARIN SODIUM) [Suspect]
     Route: 048

REACTIONS (15)
  - Erythema [None]
  - Stevens-Johnson syndrome [None]
  - Drug hypersensitivity [None]
  - Diabetes mellitus [None]
  - Skin infection [None]
  - Hypoglycaemia [None]
  - Jaundice [None]
  - Skin ulcer [None]
  - Hyperammonaemia [None]
  - Rhabdomyolysis [None]
  - Pulmonary oedema [None]
  - Hyperglycaemia [None]
  - Respiratory failure [None]
  - Refusal of treatment by relative [None]
  - Septic shock [None]
